FAERS Safety Report 18332006 (Version 2)
Quarter: 2020Q4

REPORT INFORMATION
  Report Type: Other
  Country: US (occurrence: US)
  Receive Date: 20200930
  Receipt Date: 20201006
  Transmission Date: 20210113
  Serious: Yes (Death)
  Sender: FDA-Public Use
  Company Number: US-DEXPHARM-20200882

PATIENT
  Age: 8 Month
  Sex: Male

DRUGS (7)
  1. DEXAMETHASONE. [Suspect]
     Active Substance: DEXAMETHASONE
  2. IVIG  INTRAVENOUS IMMUNE GLOBULIN [Suspect]
     Active Substance: HUMAN IMMUNOGLOBULIN G
  3. BORTEZOMIB. [Suspect]
     Active Substance: BORTEZOMIB
  4. RITUXIMAB. [Suspect]
     Active Substance: RITUXIMAB
  5. GANCICLOVIR. [Suspect]
     Active Substance: GANCICLOVIR
  6. SIROLIMUS. [Suspect]
     Active Substance: SIROLIMUS
  7. CICLOSPORIN [Suspect]
     Active Substance: CYCLOSPORINE

REACTIONS (3)
  - Intestinal perforation [Unknown]
  - Post procedural haemorrhage [Recovered/Resolved with Sequelae]
  - Hypotensive crisis [Not Recovered/Not Resolved]
